FAERS Safety Report 6422165-2 (Version None)
Quarter: 2009Q4

REPORT INFORMATION
  Report Type: 
  Country: None (occurrence: None)
  Receive Date: 20091029
  Receipt Date: 20091029
  Transmission Date: 20100525
  Serious: Yes (Hospitalization, Disabling)
  Sender: FDA-Public Use
  Company Number: None

PATIENT
  Sex: Female
  Weight: 23.587 kg

DRUGS (2)
  1. LOPRESSOR [Suspect]
     Indication: BLOOD PRESSURE INCREASED
     Dosage: 50 MG BID PO
     Route: 048
     Dates: start: 20060501
  2. ZOCOR [Suspect]
     Indication: BLOOD CHOLESTEROL ABNORMAL
     Dosage: 20 MG 1 DAILY PO
     Route: 048
     Dates: start: 20060501

REACTIONS (3)
  - BACK PAIN [None]
  - HEART RATE DECREASED [None]
  - PERIPHERAL ARTERIAL OCCLUSIVE DISEASE [None]
